FAERS Safety Report 8821264 (Version 1)
Quarter: 2012Q4

REPORT INFORMATION
  Report Type: Report from Study
  Country: US (occurrence: US)
  Receive Date: 20121002
  Receipt Date: 20121002
  Transmission Date: 20130627
  Serious: Yes (Hospitalization)
  Sender: FDA-Public Use
  Company Number: US-ABBOTT-12P-163-0989420-00

PATIENT
  Age: 44 Year
  Sex: Female

DRUGS (3)
  1. HUMIRA [Suspect]
     Indication: CROHN^S DISEASE
     Dates: start: 20120618, end: 20120618
  2. HUMIRA [Suspect]
     Dates: start: 20120702, end: 20120708
  3. HUMIRA [Suspect]
     Dates: start: 20120716, end: 20120716

REACTIONS (3)
  - Intestinal obstruction [Recovered/Resolved]
  - Abdominal adhesions [Recovered/Resolved]
  - Drug ineffective [Not Recovered/Not Resolved]
